FAERS Safety Report 17971269 (Version 1)
Quarter: 2020Q3

REPORT INFORMATION
  Report Type: Spontaneous
  Country: DE (occurrence: DE)
  Receive Date: 20200701
  Receipt Date: 20200701
  Transmission Date: 20201103
  Serious: Yes (Hospitalization, Other)
  Sender: FDA-Public Use
  Company Number: NVSC2020DE156295

PATIENT
  Age: 1 Day
  Sex: Male
  Weight: 3.48 kg

DRUGS (2)
  1. LAMOTRIGINE. [Suspect]
     Active Substance: LAMOTRIGINE
     Indication: FOETAL EXPOSURE DURING PREGNANCY
     Dosage: UNK
     Route: 064
     Dates: start: 20190310, end: 20191125
  2. INSULIN [Concomitant]
     Active Substance: INSULIN NOS
     Indication: FOETAL EXPOSURE DURING PREGNANCY
     Dosage: UNK
     Route: 064

REACTIONS (8)
  - Feeling jittery [Recovered/Resolved]
  - Somnolence [Recovered/Resolved]
  - Temperature regulation disorder [Recovered/Resolved]
  - Hypotonia neonatal [Recovered/Resolved]
  - Respiratory disorder neonatal [Recovered/Resolved]
  - Foetal exposure during pregnancy [Unknown]
  - Hypoglycaemia neonatal [Recovered/Resolved]
  - Infantile apnoea [Recovered/Resolved]

NARRATIVE: CASE EVENT DATE: 20191125
